FAERS Safety Report 13304683 (Version 1)
Quarter: 2017Q1

REPORT INFORMATION
  Report Type: Spontaneous
  Country: US (occurrence: US)
  Receive Date: 20170307
  Receipt Date: 20170307
  Transmission Date: 20170428
  Serious: Yes (Hospitalization)
  Sender: FDA-Public Use
  Company Number: None

PATIENT
  Age: 61 Year
  Sex: Female
  Weight: 75 kg

DRUGS (3)
  1. MEDIUM SSI NOVOLOG [Concomitant]
  2. LEVEMIR [Concomitant]
     Active Substance: INSULIN DETEMIR
  3. INVOKANA [Suspect]
     Active Substance: CANAGLIFLOZIN
     Indication: DIABETES MELLITUS
     Route: 048

REACTIONS (2)
  - Ketoacidosis [None]
  - Viral infection [None]

NARRATIVE: CASE EVENT DATE: 20170307
